FAERS Safety Report 4781884-4 (Version None)
Quarter: 2005Q3

REPORT INFORMATION
  Report Type: 
  Country: None (occurrence: None)
  Receive Date: 20050927
  Receipt Date: 20050914
  Transmission Date: 20060218
  Serious: Yes (Other)
  Sender: FDA-Public Use
  Company Number: 2005130458

PATIENT
  Age: 73 Year
  Sex: Male
  Weight: 72.5755 kg

DRUGS (9)
  1. NORVASC [Suspect]
     Indication: HYPERTENSION
     Dosage: SEE IMAGE
     Dates: start: 20000321
  2. NORVASC [Suspect]
     Indication: HYPERTENSION
     Dosage: SEE IMAGE
     Dates: start: 20040101
  3. NORVASC [Suspect]
     Indication: HYPERTENSION
     Dosage: SEE IMAGE
     Dates: start: 20050101
  4. ATACAND [Concomitant]
  5. METOPROLOL TARTRATE [Concomitant]
  6. INUSLIN (INSULIN) [Concomitant]
  7. FOSAMAX [Concomitant]
  8. LUPRON (LEUPROELIN ACETATE) [Concomitant]
  9. SYNTHROID [Concomitant]

REACTIONS (11)
  - ABNORMAL FAECES [None]
  - BLOOD CHOLESTEROL INCREASED [None]
  - DIARRHOEA [None]
  - DISORIENTATION [None]
  - DIZZINESS [None]
  - DRY EYE [None]
  - HYPERTENSION [None]
  - HYPOTENSION [None]
  - MACULAR DEGENERATION [None]
  - PARKINSON'S DISEASE [None]
  - THYROID DISORDER [None]
